FAERS Safety Report 6048196-2 (Version None)
Quarter: 2009Q1

REPORT INFORMATION
  Report Type: 
  Country: None (occurrence: None)
  Receive Date: 20090121
  Receipt Date: 20090121
  Transmission Date: 20090719
  Serious: Yes (Hospitalization)
  Sender: FDA-Public Use
  Company Number: None

PATIENT
  Age: 24 Year
  Sex: Female
  Weight: 66.2 kg

DRUGS (1)
  1. PRIVIGEN [Suspect]
     Dosage: 24GM EVERY THREE WEEKS IV BOLUS
     Route: 040
     Dates: start: 20090119

REACTIONS (3)
  - HYPERSENSITIVITY [None]
  - INFUSION RELATED REACTION [None]
  - TACHYCARDIA [None]
